FAERS Safety Report 4462990-0 (Version None)
Quarter: 2004Q3

REPORT INFORMATION
  Report Type: 
  Country: None (occurrence: None)
  Receive Date: 20040930
  Receipt Date: 20040617
  Transmission Date: 20050211
  Serious: Yes (Hospitalization)
  Sender: FDA-Public Use
  Company Number: 200412095JP

PATIENT
  Age: 42 Year
  Sex: Female

DRUGS (3)
  1. KETEK [Suspect]
     Indication: SINUSITIS
     Route: 048
     Dates: start: 20040611, end: 20040611
  2. DASEN [Concomitant]
     Indication: SINUSITIS
     Route: 048
     Dates: start: 20040611
  3. CARBUTAN [Concomitant]
     Indication: SINUSITIS
     Route: 048
     Dates: start: 20040611

REACTIONS (3)
  - DRUG ERUPTION [None]
  - LEUKOPENIA [None]
  - THROMBOCYTOPENIA [None]
